FAERS Safety Report 16139751 (Version 1)
Quarter: 2019Q2

REPORT INFORMATION
  Report Type: Report from Study
  Country: US (occurrence: US)
  Receive Date: 20190401
  Receipt Date: 20190401
  Transmission Date: 20190711
  Serious: Yes (Other)
  Sender: FDA-Public Use
  Company Number: US-TORRENT-00007866

PATIENT
  Age: 10 Year
  Sex: Female

DRUGS (2)
  1. CLONAZEPAM. [Concomitant]
     Active Substance: CLONAZEPAM
     Indication: PRODUCT USED FOR UNKNOWN INDICATION
     Dosage: UNKNOWN
  2. LAMOTRIGINE. [Suspect]
     Active Substance: LAMOTRIGINE
     Indication: GENERALISED TONIC-CLONIC SEIZURE

REACTIONS (4)
  - Tremor [Recovered/Resolved]
  - Irritability [Recovered/Resolved]
  - Oculogyric crisis [Recovered/Resolved]
  - Toxicity to various agents [Recovered/Resolved]
